FAERS Safety Report 18345795 (Version 3)
Quarter: 2020Q4

REPORT INFORMATION
  Report Type: Spontaneous
  Country: ES (occurrence: ES)
  Receive Date: 20201005
  Receipt Date: 20201203
  Transmission Date: 20210114
  Serious: No
  Sender: FDA-Public Use
  Company Number: ES-JNJFOC-20200931921

PATIENT
  Sex: Female

DRUGS (3)
  1. DUROGESIC MATRIX [Suspect]
     Active Substance: FENTANYL
     Route: 062
  2. DUROGESIC MATRIX [Suspect]
     Active Substance: FENTANYL
     Indication: PAIN
     Dosage: STRENGTH: 75.00 MCG/HR
     Route: 062
  3. DUROGESIC MATRIX [Suspect]
     Active Substance: FENTANYL

REACTIONS (2)
  - Drug ineffective [Unknown]
  - Product adhesion issue [Unknown]
